FAERS Safety Report 5436003-8 (Version None)
Quarter: 2007Q3

REPORT INFORMATION
  Report Type: 
  Country: None (occurrence: None)
  Receive Date: 20070831
  Receipt Date: 20070829
  Transmission Date: 20080115
  Serious: Yes (Hospitalization)
  Sender: FDA-Public Use
  Company Number: A0677477A

PATIENT
  Age: 62 Year
  Weight: 50.5 kg

DRUGS (2)
  1. LAPATINIB [Suspect]
     Indication: PANCREATIC CARCINOMA
     Dosage: 1.5G PER DAY
     Route: 048
     Dates: start: 20070608, end: 20070817
  2. GEMCITABINE HCL [Suspect]
     Indication: PANCREATIC CARCINOMA
     Dosage: 1GM2 CYCLIC
     Route: 042
     Dates: start: 20070608, end: 20070814

REACTIONS (13)
  - ABDOMINAL PAIN LOWER [None]
  - ARTERIOVENOUS MALFORMATION [None]
  - GASTRITIS [None]
  - GASTROINTESTINAL HAEMORRHAGE [None]
  - HAEMATEMESIS [None]
  - HAEMATOCHEZIA [None]
  - HYPERBILIRUBINAEMIA [None]
  - HYPOKALAEMIA [None]
  - JAUNDICE [None]
  - MESENTERIC VEIN THROMBOSIS [None]
  - NEUTROPENIA [None]
  - OESOPHAGITIS [None]
  - PORTAL HYPERTENSIVE GASTROPATHY [None]
